FAERS Safety Report 7801800-8 (Version None)
Quarter: 2011Q4

REPORT INFORMATION
  Report Type: 
  Country: None (occurrence: None)
  Receive Date: 20111007
  Receipt Date: 20111005
  Transmission Date: 20120403
  Serious: Yes (Other)
  Sender: FDA-Public Use
  Company Number: ES-PFIZER INC-2011237195

PATIENT

DRUGS (1)
  1. LINEZOLID [Suspect]
     Indication: DEVICE RELATED INFECTION
     Dosage: UNK
     Dates: start: 20110901

REACTIONS (3)
  - DEAFNESS [None]
  - LEUKOPENIA [None]
  - THROMBOCYTOPENIA [None]
